FAERS Safety Report 6251546-5 (Version None)
Quarter: 2009Q2

REPORT INFORMATION
  Report Type: 
  Country: None (occurrence: None)
  Receive Date: 20090630
  Receipt Date: 20090615
  Transmission Date: 20091009
  Serious: Yes (Hospitalization)
  Sender: FDA-Public Use
  Company Number: CA-GENENTECH-285785

PATIENT
  Sex: Female

DRUGS (1)
  1. XOLAIR [Suspect]
     Indication: ASTHMA
     Dosage: 300 MG, UNK
     Route: 058
     Dates: start: 20090223

REACTIONS (5)
  - ASTHMA [None]
  - HEART RATE INCREASED [None]
  - HYPERSENSITIVITY [None]
  - PRODUCTIVE COUGH [None]
  - PULMONARY CONGESTION [None]
